FAERS Safety Report 16753860 (Version 1)
Quarter: 2019Q3

REPORT INFORMATION
  Report Type: Spontaneous
  Country: AR (occurrence: AR)
  Receive Date: 20190829
  Receipt Date: 20190829
  Transmission Date: 20191005
  Serious: Yes (Other)
  Sender: FDA-Public Use
  Company Number: AR-BAYER-2019-155903

PATIENT
  Age: 54 Year
  Sex: Male

DRUGS (3)
  1. NEXAVAR [Suspect]
     Active Substance: SORAFENIB
     Indication: HEPATOCELLULAR CARCINOMA
     Dosage: 400 MG, BID
     Dates: start: 20180506
  2. NEXAVAR [Suspect]
     Active Substance: SORAFENIB
     Indication: HEPATOCELLULAR CARCINOMA
     Dosage: 400 MG DAILY
     Dates: start: 20181002, end: 20181008
  3. STIVARGA [Suspect]
     Active Substance: REGORAFENIB
     Indication: HEPATOCELLULAR CARCINOMA
     Dosage: 160 MG AILY
     Dates: start: 20190131

REACTIONS (17)
  - Skin toxicity [Unknown]
  - Haemangioma [Unknown]
  - Oral disorder [Unknown]
  - Asthenia [Unknown]
  - Palmar-plantar erythrodysaesthesia syndrome [Unknown]
  - Metastases to liver [Unknown]
  - Thyroid mass [Unknown]
  - Metastasis [Not Recovered/Not Resolved]
  - Alopecia [Unknown]
  - Decreased appetite [Unknown]
  - Diarrhoea [Unknown]
  - Hepatocellular carcinoma [None]
  - Abdominal pain [Unknown]
  - Portal vein thrombosis [Unknown]
  - Metastases to liver [None]
  - Palmar-plantar erythrodysaesthesia syndrome [Unknown]
  - Skin reaction [Unknown]

NARRATIVE: CASE EVENT DATE: 2018
